FAERS Safety Report 9627177 (Version 2)
Quarter: 2013Q4

REPORT INFORMATION
  Report Type: Report from Study
  Country: MX (occurrence: MX)
  Receive Date: 20131016
  Receipt Date: 20131119
  Transmission Date: 20140711
  Serious: Yes (Other)
  Sender: FDA-Public Use
  Company Number: PHHY2013MX116195

PATIENT
  Age: 80 Year
  Sex: Female
  Weight: 59 kg

DRUGS (3)
  1. EXFORGE HCT [Suspect]
     Indication: HYPERTENSION
     Dosage: 1 DF(160/5/12.5MG), DAILY
     Route: 048
     Dates: start: 201307, end: 20130716
  2. EXFORGE HCT [Suspect]
     Dosage: 0.5 DF(160/5/12.5MG), DAILY
     Route: 048
     Dates: start: 20130716
  3. ARLUY [Concomitant]
     Indication: COLITIS
     Dosage: 2 UKN, DAILY
     Dates: start: 201306

REACTIONS (9)
  - Bone fragmentation [Recovering/Resolving]
  - Haematoma [Recovered/Resolved]
  - Head injury [Recovered/Resolved]
  - Hypotension [Recovered/Resolved]
  - Syncope [Recovered/Resolved]
  - Drug intolerance [Recovered/Resolved]
  - Hypokinesia [Recovered/Resolved]
  - Back injury [Recovering/Resolving]
  - Wrong technique in drug usage process [Not Recovered/Not Resolved]
